FAERS Safety Report 11463756 (Version 1)
Quarter: 2015Q3

REPORT INFORMATION
  Report Type: Spontaneous
  Country: US (occurrence: US)
  Receive Date: 20150831
  Receipt Date: 20150831
  Transmission Date: 20151125
  Serious: No
  Sender: FDA-Public Use
  Company Number: US-ELI_LILLY_AND_COMPANY-US201103005148

PATIENT
  Sex: Female

DRUGS (3)
  1. CYMBALTA [Suspect]
     Active Substance: DULOXETINE HYDROCHLORIDE
     Indication: DEPRESSION
     Dosage: 30 MG, DAILY (1/D)
     Dates: start: 20110201, end: 20110214
  2. WELLBUTRIN [Concomitant]
     Active Substance: BUPROPION HYDROCHLORIDE
     Dates: start: 20110218
  3. XANAX [Concomitant]
     Active Substance: ALPRAZOLAM
     Dosage: 1 MG, 2/D
     Dates: start: 201102

REACTIONS (10)
  - Throat irritation [Recovered/Resolved]
  - Drug withdrawal syndrome [Recovered/Resolved]
  - Insomnia [Recovered/Resolved]
  - Abnormal dreams [Recovered/Resolved]
  - Depression [Recovered/Resolved]
  - Oropharyngeal pain [Recovered/Resolved]
  - Wrong technique in product usage process [Recovered/Resolved]
  - Panic reaction [Recovered/Resolved]
  - Anger [Recovered/Resolved]
  - Feeling abnormal [Recovered/Resolved]
